FAERS Safety Report 16854490 (Version 1)
Quarter: 2019Q3

REPORT INFORMATION
  Report Type: Spontaneous
  Country: US (occurrence: US)
  Receive Date: 20190805
  Receipt Date: 20190805
  Transmission Date: 20191005
  Serious: No
  Sender: FDA-Public Use
  Company Number: None

PATIENT
  Age: 24 Year
  Sex: Female

DRUGS (1)
  1. ILARIS [Suspect]
     Active Substance: CANAKINUMAB
     Indication: PYREXIA
     Route: 058
     Dates: start: 20190605

REACTIONS (4)
  - Dysmenorrhoea [None]
  - Metrorrhagia [None]
  - Rash [None]
  - Acne [None]

NARRATIVE: CASE EVENT DATE: 201906
